FAERS Safety Report 7834581-2 (Version None)
Quarter: 2011Q4

REPORT INFORMATION
  Report Type: 
  Country: None (occurrence: None)
  Receive Date: 20111024
  Receipt Date: 20111014
  Transmission Date: 20120403
  Serious: Yes (Hospitalization)
  Sender: FDA-Public Use
  Company Number: TR-MERCK-1110TUR00001

PATIENT
  Age: 61 Year
  Sex: Male

DRUGS (4)
  1. CANCIDAS [Suspect]
     Indication: BRONCHOPULMONARY ASPERGILLOSIS
     Route: 041
  2. CANCIDAS [Suspect]
     Route: 041
  3. CANCIDAS [Suspect]
     Route: 041
  4. CANCIDAS [Suspect]
     Indication: ANTIFUNGAL TREATMENT
     Route: 041

REACTIONS (1)
  - DRUG INEFFECTIVE [None]
